FAERS Safety Report 5860631-9 (Version None)
Quarter: 2008Q3

REPORT INFORMATION
  Report Type: 
  Country: None (occurrence: None)
  Receive Date: 20080827
  Receipt Date: 20080122
  Transmission Date: 20090109
  Serious: No
  Sender: FDA-Public Use
  Company Number: US-ABBOTT-07P-163-0419792-00

PATIENT
  Sex: Male
  Weight: 80.812 kg

DRUGS (1)
  1. COATED PDS [Suspect]
     Indication: BLOOD CHOLESTEROL INCREASED
     Route: 048
     Dates: start: 20070715

REACTIONS (1)
  - RASH ERYTHEMATOUS [None]
